FAERS Safety Report 9922384 (Version 2)
Quarter: 2014Q2

REPORT INFORMATION
  Report Type: Report from Study
  Country: BR (occurrence: BR)
  Receive Date: 20140225
  Receipt Date: 20140501
  Transmission Date: 20141212
  Serious: Yes (Other)
  Sender: FDA-Public Use
  Company Number: PHHY2014BR023153

PATIENT
  Age: 72 Year
  Sex: Female
  Weight: 73 kg

DRUGS (6)
  1. EXFORGE HCT [Suspect]
     Indication: HYPERTENSION
     Dosage: 1 TABLET (320/10/25 MG) DAILY (NIGHT)
     Route: 048
     Dates: start: 201312, end: 20140217
  2. ATENSINA [Concomitant]
     Indication: HYPERTENSION
     Dosage: 2 TABLETS (0.100 MG), 1 IN THE MORNING AND 1 AT NIGHT
     Route: 048
  3. ATENSINA [Concomitant]
     Dosage: 3 TABLETS (0.100 MG), DAILY
     Route: 048
  4. ZANIDIP [Concomitant]
     Indication: HYPERTENSION
     Dosage: 2 TABLETS (20 MG) DAILY
     Route: 048
  5. GLIFAGE [Concomitant]
     Indication: DIABETES MELLITUS
     Dosage: 2 TABLETS (500 MG) DAILY
     Route: 048
  6. INSULIN [Concomitant]
     Dosage: UNK UKN, UNK

REACTIONS (7)
  - Erysipelas [Recovering/Resolving]
  - Rash macular [Recovering/Resolving]
  - Arrhythmia [Recovered/Resolved]
  - Swelling [Recovering/Resolving]
  - Blood pressure increased [Recovered/Resolved]
  - Drug intolerance [Unknown]
  - Oedema peripheral [Recovered/Resolved]
